FAERS Safety Report 9347292 (Version 5)
Quarter: 2014Q1

REPORT INFORMATION
  Report Type: Report from Study
  Country: CA (occurrence: CA)
  Receive Date: 20130613
  Receipt Date: 20140312
  Transmission Date: 20141002
  Serious: Yes (Hospitalization)
  Sender: FDA-Public Use
  Company Number: CA-JNJFOC-20130604234

PATIENT
  Age: 74 Year
  Sex: Male
  Weight: 79.6 kg

DRUGS (2)
  1. USTEKINUMAB [Suspect]
     Indication: PSORIASIS
     Dates: start: 20060531, end: 20131120
  2. VITAMIN D [Concomitant]
     Route: 061

REACTIONS (2)
  - Myocardial infarction [Recovered/Resolved]
  - Angina pectoris [Unknown]
